FAERS Safety Report 13576868 (Version 4)
Quarter: 2017Q4

REPORT INFORMATION
  Report Type: Spontaneous
  Country: JP (occurrence: JP)
  Receive Date: 20170524
  Receipt Date: 20171121
  Transmission Date: 20180320
  Serious: Yes (Other)
  Sender: FDA-Public Use
  Company Number: JP-009507513-1705JPN002057J

PATIENT
  Age: 84 Year
  Sex: Female
  Weight: 47 kg

DRUGS (9)
  1. MAGNESIUM OXIDE. [Concomitant]
     Active Substance: MAGNESIUM OXIDE
     Indication: PROPHYLAXIS
     Dosage: 330 MG, TID
     Route: 048
  2. LYRICA [Concomitant]
     Active Substance: PREGABALIN
     Dosage: 75 MG, QD
     Route: 048
  3. AZILVA [Concomitant]
     Active Substance: AZILSARTAN KAMEDOXOMIL
     Indication: HYPERTENSION
     Dosage: 10 MG, QD
     Route: 048
  4. KEYTRUDA [Suspect]
     Active Substance: PEMBROLIZUMAB
     Indication: SPINDLE CELL SARCOMA
     Dosage: 200 MG, Q3W
     Route: 041
     Dates: start: 20170411, end: 20170502
  5. TRAMCET [Concomitant]
     Active Substance: ACETAMINOPHEN\TRAMADOL
     Indication: PAIN
     Dosage: 1 TABLET, QID
     Route: 048
  6. OXYCONTIN [Concomitant]
     Active Substance: OXYCODONE HYDROCHLORIDE
     Indication: PAIN
     Dosage: 5 MG, BID
     Route: 048
  7. OXINORM (ORGOTEIN) [Concomitant]
     Active Substance: ORGOTEIN
     Indication: PAIN
     Dosage: 2.5 MG, PRN
     Route: 048
  8. LYRICA [Concomitant]
     Active Substance: PREGABALIN
     Indication: PAIN
     Dosage: 25 MG, QD
     Route: 048
  9. NOVAMIN (PROCHLORPERAZINE MALEATE) [Concomitant]
     Active Substance: PROCHLORPERAZINE MALEATE
     Indication: PROPHYLAXIS
     Dosage: 5 MG, PRN
     Route: 048

REACTIONS (4)
  - Malignant pleural effusion [Not Recovered/Not Resolved]
  - Oesophagitis [Recovered/Resolved]
  - Fatigue [Recovered/Resolved]
  - Hypoaesthesia [Not Recovered/Not Resolved]

NARRATIVE: CASE EVENT DATE: 20170411
